FAERS Safety Report 8407587-2 (Version None)
Quarter: 2012Q2

REPORT INFORMATION
  Report Type: 
  Country: None (occurrence: None)
  Receive Date: 20120604
  Receipt Date: 20120528
  Transmission Date: 20120825
  Serious: Yes (Death, Hospitalization)
  Sender: FDA-Public Use
  Company Number: JP-CELGENEUS-087-50794-12051699

PATIENT
  Sex: Female
  Weight: 36 kg

DRUGS (15)
  1. ALLOPURINOL [Concomitant]
     Route: 065
     Dates: start: 20110822, end: 20110921
  2. KARY UNI [Concomitant]
     Route: 065
  3. VIDAZA [Suspect]
     Indication: MYELODYSPLASTIC SYNDROME
     Dosage: 75 MILLIGRAM/SQ. METER
     Route: 058
     Dates: start: 20110822, end: 20110828
  4. MAXIPIME [Concomitant]
     Route: 065
     Dates: start: 20110924, end: 20110926
  5. TEICOPLANIN [Concomitant]
     Route: 065
     Dates: start: 20110927, end: 20111010
  6. VIDAZA [Suspect]
     Dosage: 75 MILLIGRAM/SQ. METER
     Route: 058
     Dates: start: 20110923, end: 20110929
  7. VFEND [Concomitant]
     Route: 065
     Dates: start: 20111011, end: 20111024
  8. FAMOTIDINE [Concomitant]
     Route: 065
     Dates: start: 20110822
  9. FIRSTCIN [Concomitant]
     Route: 065
     Dates: start: 20111011, end: 20111024
  10. HABEKACIN [Concomitant]
     Route: 065
     Dates: start: 20111011, end: 20111024
  11. MUCOSTA [Concomitant]
     Route: 065
     Dates: start: 20110822
  12. ITRACONAZOLE [Concomitant]
     Route: 065
     Dates: start: 20110822, end: 20110928
  13. COTRIM [Concomitant]
     Route: 065
     Dates: start: 20110822, end: 20110921
  14. MEROPENEM [Concomitant]
     Route: 065
     Dates: start: 20110927, end: 20111010
  15. FUNGUARD [Concomitant]
     Route: 065
     Dates: start: 20110927, end: 20111010

REACTIONS (2)
  - CEREBRAL HAEMORRHAGE TRAUMATIC [None]
  - FEBRILE NEUTROPENIA [None]
